FAERS Safety Report 22537679 (Version 2)
Quarter: 2023Q2

REPORT INFORMATION
  Report Type: Spontaneous
  Country: US (occurrence: US)
  Receive Date: 20230608
  Receipt Date: 20230629
  Transmission Date: 20230722
  Serious: Yes (Other)
  Sender: FDA-Public Use
  Company Number: US-PFIZER INC-PV202300101074

PATIENT
  Age: 37 Year
  Sex: Female
  Weight: 86.18 kg

DRUGS (1)
  1. OXBRYTA [Suspect]
     Active Substance: VOXELOTOR
     Indication: Sickle cell anaemia with crisis
     Dosage: 1500 MG (500MG/3 TABLETS), (AT NIGHT) DAILY
     Route: 048
     Dates: start: 20220823

REACTIONS (8)
  - Wound [Unknown]
  - Wound infection [Unknown]
  - Joint injury [Unknown]
  - Malaise [Unknown]
  - Fatigue [Recovering/Resolving]
  - Skin ulcer [Not Recovered/Not Resolved]
  - Disease recurrence [Not Recovered/Not Resolved]
  - Aphonia [Not Recovered/Not Resolved]

NARRATIVE: CASE EVENT DATE: 20230501
